FAERS Safety Report 26163848 (Version 1)
Quarter: 2025Q4

REPORT INFORMATION
  Report Type: Spontaneous
  Country: US (occurrence: US)
  Receive Date: 20251216
  Receipt Date: 20251216
  Transmission Date: 20260118
  Serious: No
  Sender: Harrow Health
  Company Number: US-HARROW-HAR-2025-US-01446

PATIENT
  Age: 85 Year
  Sex: Female

DRUGS (1)
  1. VEVYE [Suspect]
     Active Substance: CYCLOSPORINE
     Dates: start: 20250903, end: 20251016

REACTIONS (3)
  - Rash [Unknown]
  - Skin exfoliation [Unknown]
  - Pruritus [Unknown]

NARRATIVE: CASE EVENT DATE: 20251013
